FAERS Safety Report 9850260 (Version 1)
Quarter: 2014Q1

REPORT INFORMATION
  Report Type: Spontaneous
  Country: US (occurrence: US)
  Receive Date: 20140128
  Receipt Date: 20140128
  Transmission Date: 20141002
  Serious: Yes (Other)
  Sender: FDA-Public Use
  Company Number: US-GLAXOSMITHKLINE-A1058345A

PATIENT
  Age: 66 Year
  Sex: Female

DRUGS (1)
  1. VOTRIENT [Suspect]
     Indication: PRODUCT USED FOR UNKNOWN INDICATION
     Dosage: 800MG PER DAY
     Route: 065

REACTIONS (2)
  - Electrocardiogram QT prolonged [Recovered/Resolved]
  - Electrocardiogram abnormal [Recovered/Resolved]
